FAERS Safety Report 21927942 (Version 3)
Quarter: 2023Q1

REPORT INFORMATION
  Report Type: Other
  Country: US (occurrence: None)
  Receive Date: 20230130
  Receipt Date: 20230316
  Transmission Date: 20230418
  Serious: No
  Sender: FDA-Public Use
  Company Number: US-ROCHE-3272497

PATIENT
  Age: 62 Year
  Sex: Male
  Weight: 99.426 kg

DRUGS (7)
  1. OCREVUS [Suspect]
     Active Substance: OCRELIZUMAB
     Indication: Relapsing-remitting multiple sclerosis
     Route: 042
     Dates: start: 20210105
  2. LYRICA [Concomitant]
     Active Substance: PREGABALIN
     Route: 065
  3. TRAMADOL [Concomitant]
     Active Substance: TRAMADOL
     Route: 065
  4. TECFIDERA [Concomitant]
     Active Substance: DIMETHYL FUMARATE
  5. BACLOFEN [Concomitant]
     Active Substance: BACLOFEN
  6. DICLOFENAC [Concomitant]
     Active Substance: DICLOFENAC
  7. PREGABALIN [Concomitant]
     Active Substance: PREGABALIN

REACTIONS (5)
  - Staphylococcal infection [Recovered/Resolved]
  - Herpes zoster [Not Recovered/Not Resolved]
  - Sinusitis [Unknown]
  - Scar [Unknown]
  - Illness [Unknown]

NARRATIVE: CASE EVENT DATE: 20210706
